FAERS Safety Report 8200165-X (Version None)
Quarter: 2012Q1

REPORT INFORMATION
  Report Type: 
  Country: None (occurrence: None)
  Receive Date: 20120306
  Receipt Date: 20120222
  Transmission Date: 20120608
  Serious: Yes (Hospitalization)
  Sender: FDA-Public Use
  Company Number: 2011P1009424

PATIENT
  Age: 17 Year
  Sex: Female
  Weight: 40.8 kg

DRUGS (12)
  1. ASVERIN POWDER (TIPEPIDINE HIBENZATE) [Concomitant]
  2. CRAVIT OPHTHALMIC SOLUTION 0.5% (LEVOFLOXACIN HYDRATE) [Concomitant]
  3. SOLUNIM CREAM (FLUCINONIDE) [Concomitant]
  4. ALLELOCK TABLETS (OLOPATADINE HYDROCHLORIDE) [Concomitant]
  5. PULSMARIN A DRY SYRUP FOR PEDIATRIC (AMBROXOL HYDROCHLORIDE) [Concomitant]
  6. BUPHENYL [Suspect]
     Indication: AMINO ACID METABOLISM DISORDER
     Dosage: 13500 MG;QD;PO, 10000 MG;TID;PO, 6700 MG;BID;PO
     Route: 048
     Dates: start: 20110922, end: 20111003
  7. BUPHENYL [Suspect]
     Indication: AMINO ACID METABOLISM DISORDER
     Dosage: 13500 MG;QD;PO, 10000 MG;TID;PO, 6700 MG;BID;PO
     Route: 048
     Dates: start: 20111007, end: 20111010
  8. BUPHENYL [Suspect]
     Indication: AMINO ACID METABOLISM DISORDER
     Dosage: 13500 MG;QD;PO, 10000 MG;TID;PO, 6700 MG;BID;PO
     Route: 048
     Dates: start: 20111004, end: 20111006
  9. AMIYU GRANULE (ESSENTIAL AMINO ACIDS FOR RENAL INSUFFICIENCY) [Concomitant]
  10. MUCODYNE DRY SYRUP 50% (L-CARBOCISTEINE) [Concomitant]
  11. HOKUNALIN TAPE 2 MG (TULOBUTEROL) [Concomitant]
  12. SULFUR AND CAMPHOR LOTION [Concomitant]

REACTIONS (10)
  - ALOPECIA [None]
  - IMPULSIVE BEHAVIOUR [None]
  - ATAXIA [None]
  - HYPERAMMONAEMIA [None]
  - PERSONALITY CHANGE [None]
  - VOMITING [None]
  - DIZZINESS [None]
  - IRRITABILITY [None]
  - AGGRESSION [None]
  - STRESS [None]
